FAERS Safety Report 16701369 (Version 4)
Quarter: 2020Q4

REPORT INFORMATION
  Report Type: Spontaneous
  Country: DE (occurrence: DE)
  Receive Date: 20190814
  Receipt Date: 20201006
  Transmission Date: 20210113
  Serious: Yes (Other)
  Sender: FDA-Public Use
  Company Number: DE-SUN PHARMACEUTICAL INDUSTRIES LTD-2019RR-217643

PATIENT
  Age: 25 Year
  Sex: Male

DRUGS (18)
  1. PREDNISONE. [Suspect]
     Active Substance: PREDNISONE
     Dosage: 60 MILLIGRAM, DAILY
     Route: 048
  2. PREDNISONE. [Suspect]
     Active Substance: PREDNISONE
     Indication: SPLENIC ABSCESS
     Dosage: 20 MILLIGRAM
     Route: 048
  3. PIPERACILLIN/TAZOBACTAM [Suspect]
     Active Substance: PIPERACILLIN SODIUM\TAZOBACTAM SODIUM
     Indication: SPLENIC ABSCESS
     Route: 065
  4. METRONIDAZOLE. [Suspect]
     Active Substance: METRONIDAZOLE
     Indication: SPLENIC ABSCESS
     Route: 065
  5. AZATHIOPRINE. [Suspect]
     Active Substance: AZATHIOPRINE
     Indication: CROHN^S DISEASE
     Route: 065
  6. MEROPENEM. [Suspect]
     Active Substance: MEROPENEM
     Indication: SPLENIC ABSCESS
     Route: 065
  7. MESALAZINE [Suspect]
     Active Substance: MESALAMINE
     Indication: CROHN^S DISEASE
     Route: 065
  8. PIPERACILLIN/TAZOBACTAM [Suspect]
     Active Substance: PIPERACILLIN SODIUM\TAZOBACTAM SODIUM
     Route: 065
  9. PREDNISONE. [Suspect]
     Active Substance: PREDNISONE
     Indication: CROHN^S DISEASE
     Dosage: 20 MILLIGRAM
     Route: 048
  10. PREDNISONE. [Suspect]
     Active Substance: PREDNISONE
     Route: 065
  11. PREDNISONE. [Suspect]
     Active Substance: PREDNISONE
     Dosage: 20 MILLIGRAM
     Route: 048
  12. PREDNISONE. [Suspect]
     Active Substance: PREDNISONE
     Indication: SPLENIC ABSCESS
     Dosage: 1 MILLIGRAM/KILOGRAM
     Route: 042
  13. PREDNISONE. [Suspect]
     Active Substance: PREDNISONE
     Dosage: 1 MILLIGRAM/KILOGRAM
     Route: 042
  14. AZATHIOPRINE. [Suspect]
     Active Substance: AZATHIOPRINE
     Route: 065
  15. MEROPENEM. [Suspect]
     Active Substance: MEROPENEM
     Route: 065
  16. PREDNISONE. [Suspect]
     Active Substance: PREDNISONE
     Indication: CROHN^S DISEASE
     Dosage: UNK
     Route: 065
  17. METRONIDAZOLE. [Suspect]
     Active Substance: METRONIDAZOLE
     Route: 065
  18. MESALAZINE [Suspect]
     Active Substance: MESALAMINE
     Indication: CROHN^S DISEASE
     Route: 065

REACTIONS (2)
  - Pancreatitis acute [Unknown]
  - Drug ineffective [Unknown]
